FAERS Safety Report 9440478 (Version 1)
Quarter: 2013Q3

REPORT INFORMATION
  Report Type: Spontaneous
  Country: US (occurrence: US)
  Receive Date: 20130805
  Receipt Date: 20130805
  Transmission Date: 20140515
  Serious: Yes (Life-Threatening, Hospitalization)
  Sender: FDA-Public Use
  Company Number: US-ASTRAZENECA-2013SE60413

PATIENT
  Sex: Male

DRUGS (2)
  1. PULMICORT RESPULES [Suspect]
     Dosage: BID
     Route: 055
  2. ADVAIR [Concomitant]

REACTIONS (7)
  - Viral infection [Unknown]
  - Gastroenteritis viral [Unknown]
  - Apparent death [Unknown]
  - Haemorrhage [Unknown]
  - Productive cough [Unknown]
  - Fungal infection [Unknown]
  - Cough [Unknown]
